FAERS Safety Report 9182316 (Version 1)
Quarter: 2013Q1

REPORT INFORMATION
  Report Type: Spontaneous
  Country: US (occurrence: None)
  Receive Date: 20130321
  Receipt Date: 20130321
  Transmission Date: 20140127
  Serious: Yes (Life-Threatening, Hospitalization, Other)
  Sender: FDA-Public Use
  Company Number: None

PATIENT
  Age: 40 Year
  Sex: Female
  Weight: 108.86 kg

DRUGS (1)
  1. NEOCON [Suspect]
     Indication: POLYCYSTIC OVARIES
     Dosage: 1/35 DAILY PILL
     Dates: start: 2002, end: 201301

REACTIONS (7)
  - Headache [None]
  - Adverse event [None]
  - Thrombophlebitis superficial [None]
  - Dyspnoea [None]
  - Pulmonary thrombosis [None]
  - Thrombosis [None]
  - Deep vein thrombosis [None]
